FAERS Safety Report 12293950 (Version 1)
Quarter: 2016Q2

REPORT INFORMATION
  Report Type: Spontaneous
  Country: US (occurrence: US)
  Receive Date: 20160422
  Receipt Date: 20160422
  Transmission Date: 20160815
  Serious: No
  Sender: FDA-Public Use
  Company Number: US-HOSPIRA-2940997

PATIENT
  Age: 57 Year
  Sex: Female
  Weight: 75.5 kg

DRUGS (4)
  1. SUCCINYLCHOLINE CHLORIDE. [Suspect]
     Active Substance: SUCCINYLCHOLINE CHLORIDE
     Indication: MUSCLE RELAXANT THERAPY
     Dosage: ONCE
     Route: 042
     Dates: start: 20150709
  2. LABETALOL [Concomitant]
     Active Substance: LABETALOL\LABETALOL HYDROCHLORIDE
     Indication: ELECTROCONVULSIVE THERAPY
     Dosage: ONCE
     Route: 042
     Dates: start: 20150709
  3. LABETALOL [Concomitant]
     Active Substance: LABETALOL\LABETALOL HYDROCHLORIDE
     Indication: HYPERTENSION
     Dosage: ONCE
     Route: 042
     Dates: start: 20150709
  4. ETOMIDATE. [Concomitant]
     Active Substance: ETOMIDATE
     Indication: ELECTROCONVULSIVE THERAPY
     Dosage: ONCE
     Route: 042
     Dates: start: 20150709

REACTIONS (1)
  - Drug ineffective [Recovered/Resolved]

NARRATIVE: CASE EVENT DATE: 20150709
